FAERS Safety Report 6838996-0 (Version None)
Quarter: 2010Q3

REPORT INFORMATION
  Report Type: 
  Country: None (occurrence: None)
  Receive Date: 20100713
  Receipt Date: 20100203
  Transmission Date: 20110219
  Serious: No
  Sender: FDA-Public Use
  Company Number: US-PFIZER INC-2007039835

PATIENT
  Sex: Female
  Weight: 77.272 kg

DRUGS (4)
  1. CHANTIX [Suspect]
     Indication: SMOKING CESSATION THERAPY
     Dosage: UNK
     Dates: start: 20070501
  2. TRICOR [Concomitant]
  3. VYTORIN [Concomitant]
  4. ACETYLSALICYLIC ACID [Concomitant]

REACTIONS (3)
  - ABDOMINAL DISCOMFORT [None]
  - NAUSEA [None]
  - PAROSMIA [None]
